FAERS Safety Report 5402350-9 (Version None)
Quarter: 2007Q3

REPORT INFORMATION
  Report Type: 
  Country: None (occurrence: None)
  Receive Date: 20070801
  Receipt Date: 20070723
  Transmission Date: 20080115
  Serious: Yes (Hospitalization)
  Sender: FDA-Public Use
  Company Number: FR-ELI_LILLY_AND_COMPANY-FR200707005840

PATIENT
  Age: 56 Year
  Sex: Female

DRUGS (5)
  1. FORTEO [Suspect]
     Indication: OSTEOPOROSIS
     Dosage: 20 UG, DAILY (1/D)
     Route: 058
     Dates: start: 20061120
  2. OXYCONTIN [Concomitant]
  3. CORTANCYL [Concomitant]
  4. ANAFRANIL [Concomitant]
  5. NEXIUM [Concomitant]

REACTIONS (7)
  - ANAEMIA [None]
  - ASTHENIA [None]
  - BLINDNESS TRANSIENT [None]
  - HEADACHE [None]
  - PYREXIA [None]
  - SEPSIS [None]
  - TRANSIENT ISCHAEMIC ATTACK [None]
